FAERS Safety Report 14768732 (Version 4)
Quarter: 2019Q2

REPORT INFORMATION
  Report Type: Spontaneous
  Country: FR (occurrence: FR)
  Receive Date: 20180417
  Receipt Date: 20190517
  Transmission Date: 20190711
  Serious: Yes (Hospitalization, Other)
  Sender: FDA-Public Use
  Company Number: FR-ASCEND THERAPEUTICS-2045859

PATIENT
  Age: 29 Year
  Sex: Female
  Weight: 55 kg

DRUGS (4)
  1. ANDROCUR (CYPROTERONE ACETATE) INDICATION FOR USE: POLYCYSTIC OVARIAN [Suspect]
     Active Substance: CYPROTERONE ACETATE
     Route: 048
     Dates: end: 20040615
  2. ESTROGEL [Suspect]
     Active Substance: ESTRADIOL
     Indication: PRODUCT USED FOR UNKNOWN INDICATION
     Route: 065
     Dates: start: 2012, end: 201711
  3. ANDROCUR (CYPROTERONE ACETATE) [Suspect]
     Active Substance: CYPROTERONE ACETATE
     Route: 065
     Dates: start: 2012, end: 201711
  4. DI-ANTALVIC (PARACETAMOL, DEXTROPROPXYPHENE HYDROCHLORIDE) [Suspect]
     Active Substance: ACETAMINOPHEN\PROPOXYPHENE HYDROCHLORIDE
     Route: 048

REACTIONS (7)
  - Amnesia [Unknown]
  - Mood swings [Unknown]
  - Aphasia [Unknown]
  - Frontotemporal dementia [Unknown]
  - Irritability [Unknown]
  - Headache [Unknown]
  - Meningioma [Unknown]
